FAERS Safety Report 22129807 (Version 3)
Quarter: 2023Q2

REPORT INFORMATION
  Report Type: Report from Study
  Country: HU (occurrence: HU)
  Receive Date: 20230323
  Receipt Date: 20230410
  Transmission Date: 20230722
  Serious: Yes (Other)
  Sender: FDA-Public Use
  Company Number: HU-Merck Healthcare KGaA-9389807

PATIENT
  Age: 46 Year
  Sex: Male

DRUGS (3)
  1. CETUXIMAB [Suspect]
     Active Substance: CETUXIMAB
     Indication: Squamous cell carcinoma of head and neck
     Dosage: UNK UNK, UNKNOWN (1/3RD OF UNKNOWN DOSE)
     Route: 065
  2. FLUOROURACIL [Suspect]
     Active Substance: FLUOROURACIL
     Indication: Squamous cell carcinoma of head and neck
     Dosage: UNK UNK, UNKNOWN
     Route: 065
  3. CISPLATIN [Suspect]
     Active Substance: CISPLATIN
     Indication: Squamous cell carcinoma of head and neck
     Dosage: UNK UNK, UNKNOWN
     Route: 065

REACTIONS (4)
  - Neutropenia [Recovered/Resolved]
  - White blood cell count decreased [Recovered/Resolved]
  - Decreased appetite [Recovered/Resolved]
  - Asthenia [Recovered/Resolved]

NARRATIVE: CASE EVENT DATE: 20230313
